FAERS Safety Report 18001233 (Version 1)
Quarter: 2020Q3

REPORT INFORMATION
  Report Type: Spontaneous
  Country: US (occurrence: US)
  Receive Date: 20200709
  Receipt Date: 20200709
  Transmission Date: 20201103
  Serious: Yes (Other)
  Sender: FDA-Public Use
  Company Number: US-BAUSCH-BL-2020-019079

PATIENT
  Sex: Female

DRUGS (2)
  1. APRISO [Suspect]
     Active Substance: MESALAMINE
     Indication: CROHN^S DISEASE
  2. APRISO [Suspect]
     Active Substance: MESALAMINE
     Indication: COLITIS ULCERATIVE
     Dosage: 400 OR 500 MG 4 TIMES A DAY
     Route: 048
     Dates: end: 201908

REACTIONS (6)
  - Crohn^s disease [Unknown]
  - Insurance issue [Unknown]
  - Colitis ulcerative [Unknown]
  - Therapy interrupted [Unknown]
  - Disease recurrence [Unknown]
  - Inability to afford medication [Unknown]

NARRATIVE: CASE EVENT DATE: 201908
